FAERS Safety Report 8315697-3 (Version None)
Quarter: 2012Q2

REPORT INFORMATION
  Report Type: 
  Country: None (occurrence: None)
  Receive Date: 20120426
  Receipt Date: 20120425
  Transmission Date: 20120825
  Serious: Yes (Death, Other)
  Sender: FDA-Public Use
  Company Number: PHHY2012GB035124

PATIENT
  Age: 53 Year
  Sex: Male

DRUGS (2)
  1. FLUOXETINE [Suspect]
     Dosage: UNK
     Route: 048
     Dates: start: 20110901
  2. ZOPICLONE [Suspect]
     Dosage: UNK
     Route: 048
     Dates: start: 20110901

REACTIONS (2)
  - MENTAL DISORDER [None]
  - COMPLETED SUICIDE [None]
